FAERS Safety Report 15830823 (Version 2)
Quarter: 2019Q1

REPORT INFORMATION
  Report Type: Spontaneous
  Country: US (occurrence: US)
  Receive Date: 20190116
  Receipt Date: 20190122
  Transmission Date: 20190417
  Serious: Yes (Hospitalization, Other)
  Sender: FDA-Public Use
  Company Number: US-ABBVIE-19K-163-2624915-00

PATIENT
  Age: 75 Year
  Sex: Male
  Weight: 86.26 kg

DRUGS (4)
  1. KEPPRA [Concomitant]
     Active Substance: LEVETIRACETAM
     Indication: PETIT MAL EPILEPSY
  2. HUMIRA [Suspect]
     Active Substance: ADALIMUMAB
     Indication: PSORIASIS
     Route: 058
     Dates: start: 20150611, end: 2018
  3. FLOMAX [Concomitant]
     Active Substance: TAMSULOSIN HYDROCHLORIDE
     Indication: BENIGN PROSTATIC HYPERPLASIA
  4. LISINOPRIL. [Concomitant]
     Active Substance: LISINOPRIL
     Indication: HYPERTENSION

REACTIONS (8)
  - Herpes simplex encephalitis [Unknown]
  - Rhinovirus infection [Recovered/Resolved]
  - Petit mal epilepsy [Recovered/Resolved]
  - Psoriasis [Unknown]
  - Petit mal epilepsy [Recovered/Resolved]
  - Aphasia [Recovering/Resolving]
  - Confusional state [Recovering/Resolving]
  - Enterovirus infection [Recovered/Resolved]

NARRATIVE: CASE EVENT DATE: 2017
